FAERS Safety Report 5486507-7 (Version None)
Quarter: 2007Q4

REPORT INFORMATION
  Report Type: 
  Country: None (occurrence: None)
  Receive Date: 20071016
  Receipt Date: 20071005
  Transmission Date: 20080405
  Serious: Yes (Hospitalization)
  Sender: FDA-Public Use
  Company Number: IE-WYE-H00526107

PATIENT
  Age: 87 Year
  Sex: Female

DRUGS (4)
  1. PANTOPRAZOLE SODIUM [Suspect]
     Route: 048
     Dates: end: 20070903
  2. ACETYLSALICYLIC ACID [Concomitant]
     Dosage: UNKNOWN
  3. IRBESARTAN [Concomitant]
     Dosage: UNKNOWN
  4. LANOXIN [Concomitant]
     Dosage: 62.5 UG, FREQUENCY UNKNOWN

REACTIONS (1)
  - HYPONATRAEMIA [None]
